FAERS Safety Report 20876310 (Version 3)
Quarter: 2022Q3

REPORT INFORMATION
  Report Type: Spontaneous
  Country: US (occurrence: US)
  Receive Date: 20220526
  Receipt Date: 20220718
  Transmission Date: 20221027
  Serious: Yes (Other)
  Sender: FDA-Public Use
  Company Number: US-ORGANON-O2205USA001882

PATIENT
  Age: 31 Year
  Sex: Female
  Weight: 112.02 kg

DRUGS (1)
  1. NEXPLANON [Suspect]
     Active Substance: ETONOGESTREL
     Dosage: 1 IMPLANT IN LEFT UPPER ARM (STRENGTH: 68 MG)
     Route: 059
     Dates: start: 20220510, end: 20220511

REACTIONS (3)
  - Device expulsion [Recovered/Resolved]
  - Device dislocation [Recovered/Resolved]
  - No adverse event [Unknown]

NARRATIVE: CASE EVENT DATE: 20220511
